FAERS Safety Report 8774625 (Version 1)
Quarter: 2012Q4

REPORT INFORMATION
  Report Type: 
  Country: IT (occurrence: IT)
  Receive Date: 20120913
  Receipt Date: 20120913
  Transmission Date: 20130627
  Serious: Yes (Hospitalization)
  Sender: FDA-Public Use
  Company Number: IT-009507513-1209ITA000294

PATIENT

DRUGS (5)
  1. MODURETIC 5/50 MG COMPRESSE [Suspect]
     Dosage: 5 mg + 50 mg, qd
     Route: 048
     Dates: start: 20120226, end: 20120826
  2. METFORMIN [Concomitant]
     Dosage: 500 mg, qd
     Route: 048
  3. KLACID (CLARITHROMYCIN LACTOBIONATE) [Concomitant]
  4. COUMADIN [Concomitant]
  5. LASIX (FUROSEMIDE) [Concomitant]

REACTIONS (1)
  - Hyponatraemia [Recovering/Resolving]
